FAERS Safety Report 25852550 (Version 1)
Quarter: 2025Q3

REPORT INFORMATION
  Report Type: Report from Study
  Country: US (occurrence: US)
  Receive Date: 20250926
  Receipt Date: 20250926
  Transmission Date: 20251020
  Serious: No
  Sender: MALLINCKRODT
  Company Number: US-MALLINCKRODT-MNK202506000

PATIENT
  Sex: Female

DRUGS (1)
  1. CORTICOTROPIN [Suspect]
     Active Substance: CORTICOTROPIN
     Indication: Noninfective chorioretinitis

REACTIONS (5)
  - Glucose tolerance impaired [Unknown]
  - Blood cholesterol increased [Unknown]
  - Gout [Unknown]
  - Osteoarthritis [Unknown]
  - Hypertension [Unknown]
